FAERS Safety Report 23891445 (Version 1)
Quarter: 2024Q2

REPORT INFORMATION
  Report Type: Spontaneous
  Country: US (occurrence: US)
  Receive Date: 20240523
  Receipt Date: 20240523
  Transmission Date: 20240716
  Serious: Yes (Hospitalization, Other)
  Sender: FDA-Public Use
  Company Number: US-APOTEX-2024AP006152

PATIENT
  Age: 55 Year
  Sex: Male

DRUGS (1)
  1. ACETAMINOPHEN [Suspect]
     Active Substance: ACETAMINOPHEN
     Indication: Product used for unknown indication
     Dosage: AT LEAST 5 GRAMS
     Route: 048

REACTIONS (2)
  - Liver injury [Recovering/Resolving]
  - Toxicity to various agents [Recovering/Resolving]
